FAERS Safety Report 10040574 (Version 3)
Quarter: 2014Q2

REPORT INFORMATION
  Report Type: Spontaneous
  Country: CA (occurrence: CA)
  Receive Date: 20140327
  Receipt Date: 20140418
  Transmission Date: 20141212
  Serious: Yes (Hospitalization, Other)
  Sender: FDA-Public Use
  Company Number: CA-AMGEN-CANSP2014021228

PATIENT
  Age: 42 Year
  Sex: Female

DRUGS (4)
  1. ENBREL [Suspect]
     Indication: RHEUMATOID ARTHRITIS
     Dosage: 50 MG, QWK
     Route: 065
     Dates: start: 20120215, end: 20140214
  2. SULFASALAZINE [Concomitant]
     Dosage: UNK
  3. TYLENOL                            /00020001/ [Concomitant]
     Dosage: UNK
  4. MORPHINE [Concomitant]
     Dosage: UNK

REACTIONS (5)
  - Cholecystectomy [Not Recovered/Not Resolved]
  - Pain [Unknown]
  - Urinary tract infection [Unknown]
  - Infection [Not Recovered/Not Resolved]
  - Arthritis [Unknown]
